FAERS Safety Report 25952699 (Version 1)
Quarter: 2025Q4

REPORT INFORMATION
  Report Type: Spontaneous
  Country: US (occurrence: None)
  Receive Date: 20251023
  Receipt Date: 20251023
  Transmission Date: 20260117
  Serious: Yes (Death, Other)
  Sender: INCYTE
  Company Number: US-INCYTE CORPORATION-2025IN011719

PATIENT
  Age: 71 Year
  Weight: 74.422 kg

DRUGS (1)
  1. JAKAFI [Suspect]
     Active Substance: RUXOLITINIB
     Indication: Haematological neoplasm
     Dosage: 5 MILLIGRAM, QD

REACTIONS (2)
  - Death [Fatal]
  - Off label use [Unknown]
